FAERS Safety Report 5975622-7 (Version None)
Quarter: 2008Q4

REPORT INFORMATION
  Report Type: 
  Country: None (occurrence: None)
  Receive Date: 20081128
  Receipt Date: 20081112
  Transmission Date: 20090506
  Serious: Yes (Hospitalization)
  Sender: FDA-Public Use
  Company Number: 8039694

PATIENT
  Age: 14 Year
  Sex: Male

DRUGS (4)
  1. LEVETIRACETAM [Suspect]
     Indication: LENNOX-GASTAUT SYNDROME
     Dosage: 250 MG /D
     Dates: start: 20070101, end: 20070101
  2. LEVETIRACETAM [Suspect]
     Indication: LENNOX-GASTAUT SYNDROME
     Dosage: 500 MG /D
     Dates: start: 20070101, end: 20070101
  3. PHENOBARBITAL TAB [Concomitant]
  4. TOPIRAMATE [Concomitant]

REACTIONS (5)
  - DYSPHAGIA [None]
  - MYOCLONIC EPILEPSY [None]
  - PARTIAL SEIZURES [None]
  - PETIT MAL EPILEPSY [None]
  - STATUS EPILEPTICUS [None]
